FAERS Safety Report 18285584 (Version 1)
Quarter: 2020Q3

REPORT INFORMATION
  Report Type: Report from Study
  Country: None (occurrence: US)
  Receive Date: 20200919
  Receipt Date: 20200919
  Transmission Date: 20201103
  Serious: Yes (Hospitalization)
  Sender: FDA-Public Use
  Company Number: US-ABBVIE-20K-163-3324916-00

PATIENT
  Sex: Male
  Weight: 70.37 kg

DRUGS (4)
  1. HUMIRA [Suspect]
     Active Substance: ADALIMUMAB
     Route: 058
     Dates: start: 20200807
  2. IRON [Suspect]
     Active Substance: IRON
     Route: 065
  3. IRON [Suspect]
     Active Substance: IRON
     Indication: ANAEMIA
     Route: 065
  4. HUMIRA [Suspect]
     Active Substance: ADALIMUMAB
     Indication: CROHN^S DISEASE
     Dosage: CITRATE FREE?INCREASED TO CONTROL DIARRHEA
     Route: 058
     Dates: start: 20191227, end: 20200807

REACTIONS (6)
  - Anaemia [Recovering/Resolving]
  - Crohn^s disease [Recovering/Resolving]
  - Fall [Recovering/Resolving]
  - Nausea [Unknown]
  - Pulmonary mass [Unknown]
  - Vomiting [Unknown]

NARRATIVE: CASE EVENT DATE: 2020
